FAERS Safety Report 4824144-5 (Version None)
Quarter: 2005Q4

REPORT INFORMATION
  Report Type: 
  Country: None (occurrence: None)
  Receive Date: 20051108
  Receipt Date: 20051027
  Transmission Date: 20060501
  Serious: Yes (Hospitalization, Other)
  Sender: FDA-Public Use
  Company Number: USA0510112073

PATIENT
  Sex: Female

DRUGS (1)
  1. FORTEO [Suspect]

REACTIONS (5)
  - CHEST PAIN [None]
  - HEART RATE INCREASED [None]
  - HYPERTENSION [None]
  - PALPITATIONS [None]
  - PANIC REACTION [None]
